FAERS Safety Report 6056571-5 (Version None)
Quarter: 2009Q1

REPORT INFORMATION
  Report Type: 
  Country: None (occurrence: None)
  Receive Date: 20090126
  Receipt Date: 20090114
  Transmission Date: 20090719
  Serious: Yes (Death, Life-Threatening, Hospitalization, Other)
  Sender: FDA-Public Use
  Company Number: 2009US000088

PATIENT
  Age: 72 Year
  Sex: Male

DRUGS (5)
  1. PROGRAF [Suspect]
     Indication: LUNG TRANSPLANT
  2. MYCOPHENOLATE MOFETIL [Concomitant]
  3. PREDNISONE TAB [Concomitant]
  4. BACTRIM [Concomitant]
  5. PRAVASTATIN [Concomitant]

REACTIONS (7)
  - ASCITES [None]
  - CYTOMEGALOVIRUS INFECTION [None]
  - HEPATIC ENCEPHALOPATHY [None]
  - HEPATITIS C [None]
  - HEPATITIS CHOLESTATIC [None]
  - HEPATOTOXICITY [None]
  - LUNG TRANSPLANT REJECTION [None]
